FAERS Safety Report 7542526-8 (Version None)
Quarter: 2011Q2

REPORT INFORMATION
  Report Type: 
  Country: None (occurrence: None)
  Receive Date: 20110613
  Receipt Date: 20110608
  Transmission Date: 20111010
  Serious: Yes (Other)
  Sender: FDA-Public Use
  Company Number: JM-ABBOTT-11P-086-0731192-00

PATIENT
  Sex: Female

DRUGS (1)
  1. ULTANE [Suspect]
     Indication: PRODUCT USED FOR UNKNOWN INDICATION

REACTIONS (3)
  - DYSPNOEA [None]
  - TRISMUS [None]
  - UPPER AIRWAY OBSTRUCTION [None]
